FAERS Safety Report 8126878-6 (Version None)
Quarter: 2012Q1

REPORT INFORMATION
  Report Type: 
  Country: None (occurrence: None)
  Receive Date: 20120210
  Receipt Date: 20120206
  Transmission Date: 20120608
  Serious: No
  Sender: FDA-Public Use
  Company Number: US-PFIZER INC-2012032915

PATIENT

DRUGS (1)
  1. XALKORI [Suspect]
     Dosage: 250 MG, 2X/DAY

REACTIONS (1)
  - NAUSEA [None]
